FAERS Safety Report 15012948 (Version 1)
Quarter: 2018Q2

REPORT INFORMATION
  Report Type: Spontaneous
  Country: US (occurrence: US)
  Receive Date: 20180614
  Receipt Date: 20180614
  Transmission Date: 20180711
  Serious: Yes (Other)
  Sender: FDA-Public Use
  Company Number: US-TAKEDA-2018TUS019376

PATIENT

DRUGS (18)
  1. SUMYCIN [Concomitant]
     Active Substance: TETRACYCLINE
     Indication: BACTERIAL INFECTION
     Dosage: UNK
     Dates: start: 19990618
  2. GENTAMIN [Concomitant]
     Indication: BACTERIAL INFECTION
     Dosage: UNK
     Dates: start: 20081218, end: 20121206
  3. CEFAZOLIN [Concomitant]
     Active Substance: CEFAZOLIN
     Indication: BACTERIAL INFECTION
     Dosage: UNK
     Dates: start: 20110630, end: 20121206
  4. IBUPROFEN. [Concomitant]
     Active Substance: IBUPROFEN
     Indication: ARTHRITIS
  5. PREVACID [Suspect]
     Active Substance: LANSOPRAZOLE
     Indication: GASTROOESOPHAGEAL REFLUX DISEASE
     Dosage: 30 MG, UNK
     Route: 048
     Dates: start: 20061212, end: 20171121
  6. DOXYCYCLINE HYCLATE. [Concomitant]
     Active Substance: DOXYCYCLINE HYCLATE
     Indication: INFECTION
     Dosage: UNK
     Dates: start: 201701, end: 201712
  7. LANSOPRAZOLE. [Suspect]
     Active Substance: LANSOPRAZOLE
     Indication: GASTROOESOPHAGEAL REFLUX DISEASE
     Dosage: 30 MG, UNK
     Route: 048
     Dates: start: 20121228, end: 20151113
  8. DIOVAN [Concomitant]
     Active Substance: VALSARTAN
     Indication: SENSATION OF BLOOD FLOW
     Dosage: UNK
     Dates: start: 19990920
  9. LOSARTAN POTASSIUM. [Concomitant]
     Active Substance: LOSARTAN POTASSIUM
     Indication: HYPERTENSION
     Dosage: UNK
     Dates: start: 201701, end: 201712
  10. FUROSEMIDE. [Concomitant]
     Active Substance: FUROSEMIDE
     Indication: CARDIAC FAILURE CONGESTIVE
     Dosage: UNK
     Dates: start: 20180516
  11. IBUPROFEN. [Concomitant]
     Active Substance: IBUPROFEN
     Indication: FIBROMYALGIA
     Dosage: UNK
     Dates: start: 2003, end: 2007
  12. CEFTRIAXONE. [Concomitant]
     Active Substance: CEFTRIAXONE
     Indication: BACTERIAL INFECTION
     Dosage: UNK
     Dates: start: 20081208, end: 20121206
  13. TRIMETHOPRIM. [Concomitant]
     Active Substance: TRIMETHOPRIM
     Indication: BACTERIAL INFECTION
     Dosage: UNK
     Dates: start: 20081218, end: 20121206
  14. AZITHROMYCIN ANHYDROUS. [Concomitant]
     Active Substance: AZITHROMYCIN ANHYDROUS
     Indication: RESPIRATORY TRACT INFECTION
     Dosage: UNK
     Dates: start: 201701, end: 201712
  15. ERYTHROMYCIN. [Concomitant]
     Active Substance: ERYTHROMYCIN
     Indication: BACTERIAL INFECTION
     Dosage: UNK
     Dates: start: 19990610
  16. LOSARTAN. [Concomitant]
     Active Substance: LOSARTAN
     Indication: HYPERTENSION
     Dosage: UNK
     Dates: start: 20150702
  17. LOSARTAN POTASSIUM. [Concomitant]
     Active Substance: LOSARTAN POTASSIUM
     Indication: DIABETES MELLITUS
  18. ASPIRIN                            /00002701/ [Concomitant]
     Active Substance: ASPIRIN
     Indication: ARTHRITIS
     Dosage: UNK
     Dates: start: 20151112

REACTIONS (2)
  - Chronic kidney disease [Unknown]
  - Renal failure [Unknown]

NARRATIVE: CASE EVENT DATE: 200806
